FAERS Safety Report 7512816-3 (Version None)
Quarter: 2011Q2

REPORT INFORMATION
  Report Type: 
  Country: None (occurrence: None)
  Receive Date: 20110531
  Receipt Date: 20110519
  Transmission Date: 20111010
  Serious: Yes (Hospitalization)
  Sender: FDA-Public Use
  Company Number: NL-ASTRAZENECA-2011SE30415

PATIENT
  Age: 76 Year
  Sex: Female
  Weight: 120 kg

DRUGS (5)
  1. BUMETANIDE ACTAVIS [Concomitant]
     Route: 048
     Dates: start: 20110301, end: 20110509
  2. SPIRONOLACTONE [Concomitant]
     Dosage: 50 MG
     Route: 048
     Dates: start: 20110101, end: 20110509
  3. METOPROLOL SUCCINATE [Suspect]
     Indication: ATRIAL FIBRILLATION
     Dosage: 200 MG
     Route: 048
     Dates: start: 20100101, end: 20110509
  4. COZAAR [Concomitant]
     Dosage: 50 MG
     Route: 048
     Dates: start: 20100101
  5. LANOXIN [Suspect]
     Indication: ATRIAL FIBRILLATION
     Route: 048
     Dates: start: 20110301, end: 20110509

REACTIONS (2)
  - RENAL IMPAIRMENT [None]
  - BRADYCARDIA [None]
